FAERS Safety Report 5129670-X (Version None)
Quarter: 2006Q4

REPORT INFORMATION
  Report Type: 
  Country: None (occurrence: None)
  Receive Date: 20061018
  Receipt Date: 20061012
  Transmission Date: 20070319
  Serious: Yes (Hospitalization)
  Sender: FDA-Public Use
  Company Number: US-GLAXOSMITHKLINE-A0623757A

PATIENT
  Sex: Female

DRUGS (1)
  1. LAMICTAL [Suspect]
     Indication: HEADACHE
     Dosage: 25MG UNKNOWN
     Route: 048
     Dates: start: 20051011, end: 20051028

REACTIONS (20)
  - BLISTER [None]
  - BURNING SENSATION [None]
  - BURNS FIRST DEGREE [None]
  - BURNS SECOND DEGREE [None]
  - CHEILITIS [None]
  - CONVULSION [None]
  - DISCOMFORT [None]
  - DIZZINESS [None]
  - DRUG TOXICITY [None]
  - DYSPNOEA [None]
  - ERYTHEMA [None]
  - INJURY CORNEAL [None]
  - NAUSEA [None]
  - OCULAR HYPERAEMIA [None]
  - PAIN [None]
  - PHARYNGEAL OEDEMA [None]
  - RASH [None]
  - RASH PUSTULAR [None]
  - SKIN EXFOLIATION [None]
  - SKIN IRRITATION [None]
